FAERS Safety Report 9340637 (Version 1)
Quarter: 2013Q2

REPORT INFORMATION
  Report Type: Spontaneous
  Country: FR (occurrence: FR)
  Receive Date: 20130610
  Receipt Date: 20130610
  Transmission Date: 20140414
  Serious: Yes (Other)
  Sender: FDA-Public Use
  Company Number: FR-ASTRAZENECA-2013SE39814

PATIENT
  Age: 23250 Day
  Sex: Male
  Weight: 75 kg

DRUGS (15)
  1. INEXIUM [Suspect]
     Route: 048
     Dates: start: 201101, end: 20121002
  2. CELLCEPT [Suspect]
     Route: 048
     Dates: end: 20120814
  3. CELLCEPT [Suspect]
     Route: 048
     Dates: start: 201101
  4. ROVALCYTE [Suspect]
     Indication: CYTOMEGALOVIRUS INFECTION
     Route: 048
     Dates: start: 20120120, end: 20120426
  5. BACTRIM FORTE [Suspect]
     Indication: PROPHYLAXIS
     Dosage: 800 MG SULFAMETHOXASOLE / 160 MG TRIMETHOPRIME PER DOSE, 0.5 DF EVERY MORNING
     Route: 048
     Dates: start: 20120113, end: 20130320
  6. PROGRAF [Concomitant]
     Route: 048
     Dates: start: 201101
  7. PROGRAF [Concomitant]
     Route: 048
  8. CORTANCYL [Concomitant]
  9. CORTANCYL [Concomitant]
  10. COUMADINE [Concomitant]
  11. COUMADINE [Concomitant]
  12. CLAFORAN [Concomitant]
  13. DELURSAN [Concomitant]
     Dates: end: 20120113
  14. TRIFLUCAN [Concomitant]
     Dates: end: 20120120
  15. ZOVIRAX [Concomitant]

REACTIONS (2)
  - Cytomegalovirus infection [Unknown]
  - Neutropenia [Recovering/Resolving]
